FAERS Safety Report 18510270 (Version 1)
Quarter: 2020Q4

REPORT INFORMATION
  Report Type: Spontaneous
  Country: CA (occurrence: CA)
  Receive Date: 20201117
  Receipt Date: 20201117
  Transmission Date: 20210114
  Serious: Yes (Other)
  Sender: FDA-Public Use
  Company Number: CA-JNJFOC-20201110083

PATIENT
  Age: 51 Year
  Sex: Female

DRUGS (1)
  1. INFLIXIMAB, RECOMBINANT [Suspect]
     Active Substance: INFLIXIMAB
     Indication: CROHN^S DISEASE
     Route: 042

REACTIONS (8)
  - Inappropriate schedule of product administration [Unknown]
  - Intentional product misuse [Unknown]
  - Tooth disorder [Unknown]
  - Crying [Unknown]
  - Blood pressure increased [Unknown]
  - Intentional product use issue [Unknown]
  - Malaise [Unknown]
  - Product dose omission issue [Unknown]
